FAERS Safety Report 18688119 (Version 1)
Quarter: 2020Q4

REPORT INFORMATION
  Report Type: Spontaneous
  Country: US (occurrence: US)
  Receive Date: 20201230
  Receipt Date: 20201230
  Transmission Date: 20210114
  Serious: Yes (Life-Threatening)
  Sender: FDA-Public Use
  Company Number: None

PATIENT
  Age: 83 Year
  Sex: Male
  Weight: 59.8 kg

DRUGS (4)
  1. POLYETHYLENE GLYCOL [Concomitant]
     Active Substance: POLYETHYLENE GLYCOLS
     Dates: start: 20201229
  2. OLANZAPINE. [Suspect]
     Active Substance: OLANZAPINE
     Indication: AGITATION
     Route: 042
     Dates: start: 20201228, end: 20201230
  3. HYDRALAZINE [Suspect]
     Active Substance: HYDRALAZINE HYDROCHLORIDE
     Indication: HYPERTENSION
     Route: 042
     Dates: start: 20201227, end: 20201230
  4. BISACODYL SUPPOSITORY [Concomitant]
     Active Substance: BISACODYL
     Dates: start: 20201229

REACTIONS (2)
  - Angioedema [None]
  - Respiratory rate increased [None]

NARRATIVE: CASE EVENT DATE: 20201229
